FAERS Safety Report 11092286 (Version 1)
Quarter: 2015Q2

REPORT INFORMATION
  Report Type: Spontaneous
  Country: HU (occurrence: HU)
  Receive Date: 20150506
  Receipt Date: 20150506
  Transmission Date: 20150821
  Serious: Yes (Death)
  Sender: FDA-Public Use
  Company Number: HU-ROCHE-1565582

PATIENT
  Age: 48 Year
  Sex: Female
  Weight: 80 kg

DRUGS (11)
  1. CISPLATIN ACCORD [Concomitant]
     Active Substance: CISPLATIN
     Indication: CERVIX CANCER METASTATIC
     Dosage: 1 MG/ML.
     Route: 042
     Dates: start: 20150409, end: 20150409
  2. PACLITAXEL. [Concomitant]
     Active Substance: PACLITAXEL
     Indication: CERVIX CANCER METASTATIC
     Dosage: 175MG/M2 CONTAINING TWO DIFFERENT BATCHES
     Route: 042
     Dates: start: 20150409, end: 20150409
  3. AVASTIN [Suspect]
     Active Substance: BEVACIZUMAB
     Indication: CERVIX CANCER METASTATIC
     Route: 042
     Dates: start: 20150409, end: 20150409
  4. ONDASETRON [Concomitant]
     Active Substance: ONDANSETRON
     Indication: PREMEDICATION
     Route: 065
  5. RYTMONORM [Concomitant]
     Active Substance: PROPAFENONE
     Dosage: ONE TABLET TAKEN ONCE DAILY
     Route: 048
  6. FAMOTIDINE. [Concomitant]
     Active Substance: FAMOTIDINE
     Indication: PREMEDICATION
     Route: 065
     Dates: start: 20150408
  7. PACLITAXEL. [Concomitant]
     Active Substance: PACLITAXEL
     Indication: CERVIX CANCER METASTATIC
     Route: 042
     Dates: start: 20150409, end: 20150409
  8. CLEXANE [Suspect]
     Active Substance: ENOXAPARIN SODIUM
     Indication: PROPHYLAXIS
     Route: 058
     Dates: start: 201403
  9. CHLORPROMAZINE [Concomitant]
     Active Substance: CHLORPROMAZINE
     Indication: PREMEDICATION
     Route: 065
     Dates: start: 20150409
  10. SOLU-MEDROL [Concomitant]
     Active Substance: METHYLPREDNISOLONE SODIUM SUCCINATE
     Indication: PREMEDICATION
     Dosage: SOLU-MEDROL POWDER AND SOLVENT FOR SOLUTION FOR INJECTION
     Route: 065
     Dates: start: 20150409
  11. METHYLPREDNISOLONE. [Concomitant]
     Active Substance: METHYLPREDNISOLONE
     Indication: PREMEDICATION
     Route: 065
     Dates: start: 20150408

REACTIONS (4)
  - Pulmonary haemorrhage [Fatal]
  - Somnolence [Fatal]
  - Haemoptysis [Fatal]
  - Asthenia [Fatal]

NARRATIVE: CASE EVENT DATE: 20150411
